FAERS Safety Report 25795353 (Version 1)
Quarter: 2025Q3

REPORT INFORMATION
  Report Type: Spontaneous
  Country: TR (occurrence: TR)
  Receive Date: 20250912
  Receipt Date: 20250912
  Transmission Date: 20251021
  Serious: Yes (Hospitalization, Other)
  Sender: CSL BEHRING
  Company Number: TR-BEH-2025218576

PATIENT
  Sex: Male

DRUGS (3)
  1. HUMAN IMMUNOGLOBULIN G [Suspect]
     Active Substance: HUMAN IMMUNOGLOBULIN G
     Route: 064
  2. HUMAN IMMUNOGLOBULIN G [Suspect]
     Active Substance: HUMAN IMMUNOGLOBULIN G
     Route: 042
  3. METHYLPREDNISOLONE [Suspect]
     Active Substance: METHYLPREDNISOLONE
     Route: 064

REACTIONS (11)
  - Intracranial haemorrhage neonatal [Unknown]
  - Platelet count decreased [Unknown]
  - Intracranial haematoma [Unknown]
  - Thrombocytopenia [Unknown]
  - Bacteraemia [Unknown]
  - Tachypnoea [Unknown]
  - Feeding intolerance [Unknown]
  - Tachycardia [Unknown]
  - Dependence on oxygen therapy [Unknown]
  - Term baby [Unknown]
  - Foetal exposure during pregnancy [Unknown]
